FAERS Safety Report 8229251-5 (Version None)
Quarter: 2012Q1

REPORT INFORMATION
  Report Type: 
  Country: None (occurrence: None)
  Receive Date: 20120322
  Receipt Date: 20120316
  Transmission Date: 20120608
  Serious: Yes (Hospitalization, Other)
  Sender: FDA-Public Use
  Company Number: US-JNJFOC-20120308436

PATIENT
  Age: 84 Year
  Sex: Female

DRUGS (1)
  1. PANCREAZE [Suspect]
     Indication: GASTRIC DISORDER
     Route: 048

REACTIONS (3)
  - HIP ARTHROPLASTY [None]
  - DEVICE RELATED INFECTION [None]
  - HOSPITALISATION [None]
